FAERS Safety Report 7475520-6 (Version None)
Quarter: 2011Q2

REPORT INFORMATION
  Report Type: 
  Country: None (occurrence: None)
  Receive Date: 20110512
  Receipt Date: 20110509
  Transmission Date: 20111010
  Serious: Yes (Death)
  Sender: FDA-Public Use
  Company Number: PHHY2011NL39326

PATIENT
  Sex: Male

DRUGS (3)
  1. ZOMETA [Suspect]
     Dosage: 4 MG, UNK
     Dates: start: 20110426
  2. SODIUM CHLORIDE [Concomitant]
  3. ZOMETA [Suspect]
     Indication: PROSTATE CANCER METASTATIC
     Dosage: 4 MG, UNK
     Dates: start: 20101101

REACTIONS (1)
  - CARDIAC ARREST [None]
